FAERS Safety Report 19844534 (Version 1)
Quarter: 2021Q3

REPORT INFORMATION
  Report Type: Other
  Country: AR (occurrence: AR)
  Receive Date: 20210917
  Receipt Date: 20210917
  Transmission Date: 20211014
  Serious: Yes (Life-Threatening, Other)
  Sender: FDA-Public Use
  Company Number: AR-ROCHE-1834769

PATIENT
  Age: 56 Year
  Sex: Female

DRUGS (10)
  1. XOLAIR [Suspect]
     Active Substance: OMALIZUMAB
     Route: 065
  2. FLUTICASONE;SALMETEROL [Concomitant]
     Active Substance: FLUTICASONE PROPIONATE\SALMETEROL XINAFOATE
     Indication: PRODUCT USED FOR UNKNOWN INDICATION
     Route: 065
  3. XOLAIR [Suspect]
     Active Substance: OMALIZUMAB
     Indication: ASTHMA
     Dosage: 1 DF
     Route: 058
     Dates: start: 20151020
  4. XOLAIR [Suspect]
     Active Substance: OMALIZUMAB
     Route: 058
     Dates: start: 20151002
  5. XOLAIR [Suspect]
     Active Substance: OMALIZUMAB
     Route: 058
  6. OMEPRAZOLE. [Concomitant]
     Active Substance: OMEPRAZOLE
     Indication: PRODUCT USED FOR UNKNOWN INDICATION
  7. FEXOFENADINE [Concomitant]
     Active Substance: FEXOFENADINE HYDROCHLORIDE
     Indication: PRODUCT USED FOR UNKNOWN INDICATION
     Route: 065
  8. SERETIDE [Concomitant]
     Active Substance: FLUTICASONE PROPIONATE\SALMETEROL XINAFOATE
     Indication: PRODUCT USED FOR UNKNOWN INDICATION
     Route: 065
  9. XOLAIR [Suspect]
     Active Substance: OMALIZUMAB
     Route: 065
     Dates: start: 2016, end: 2016
  10. XOLAIR [Suspect]
     Active Substance: OMALIZUMAB
     Route: 065
     Dates: end: 20200302

REACTIONS (31)
  - Amnesia [Not Recovered/Not Resolved]
  - Nasal discomfort [Recovering/Resolving]
  - Ear pain [Not Recovered/Not Resolved]
  - Visual impairment [Not Recovered/Not Resolved]
  - Chest discomfort [Not Recovered/Not Resolved]
  - Ear infection [Recovering/Resolving]
  - Weight increased [Not Recovered/Not Resolved]
  - Dizziness [Not Recovered/Not Resolved]
  - Influenza like illness [Unknown]
  - Blood immunoglobulin E increased [Not Recovered/Not Resolved]
  - Asthmatic crisis [Recovering/Resolving]
  - Secretion discharge [Not Recovered/Not Resolved]
  - Breath sounds abnormal [Not Recovered/Not Resolved]
  - Sensitivity to weather change [Unknown]
  - Nasal congestion [Unknown]
  - Condition aggravated [Recovering/Resolving]
  - Drug ineffective [Unknown]
  - Dysstasia [Not Recovered/Not Resolved]
  - Cough [Not Recovered/Not Resolved]
  - Tympanic membrane perforation [Unknown]
  - Sinus disorder [Not Recovered/Not Resolved]
  - Malaise [Recovering/Resolving]
  - Wheezing [Unknown]
  - Bronchospasm [Recovering/Resolving]
  - Hypoacusis [Not Recovered/Not Resolved]
  - Rhinorrhoea [Unknown]
  - Deafness [Recovering/Resolving]
  - Fontanelle bulging [Recovering/Resolving]
  - Obesity [Unknown]
  - Anxiety [Not Recovered/Not Resolved]
  - Feeling abnormal [Not Recovered/Not Resolved]

NARRATIVE: CASE EVENT DATE: 201710
